FAERS Safety Report 22666262 (Version 2)
Quarter: 2025Q1

REPORT INFORMATION
  Report Type: Spontaneous
  Country: US (occurrence: US)
  Receive Date: 20230703
  Receipt Date: 20250307
  Transmission Date: 20250409
  Serious: No
  Sender: SANOFI AVENTIS
  Company Number: US-SA-2023SA201063

PATIENT
  Age: 53 Year
  Sex: Female

DRUGS (2)
  1. DUPIXENT [Suspect]
     Active Substance: DUPILUMAB
     Indication: Pruritus
     Route: 058
     Dates: start: 202305, end: 202305
  2. DUPIXENT [Suspect]
     Active Substance: DUPILUMAB
     Indication: Dermatitis atopic
     Dosage: 300 MG, QOW
     Route: 058
     Dates: start: 2023

REACTIONS (4)
  - Blood pressure increased [Unknown]
  - Urticaria [Unknown]
  - Product use in unapproved indication [Unknown]
  - Rash [Unknown]

NARRATIVE: CASE EVENT DATE: 20230101
